FAERS Safety Report 11325759 (Version 2)
Quarter: 2015Q4

REPORT INFORMATION
  Report Type: Spontaneous
  Country: DE (occurrence: DE)
  Receive Date: 20150731
  Receipt Date: 20151013
  Transmission Date: 20160304
  Serious: Yes (Disabling, Other)
  Sender: FDA-Public Use
  Company Number: DE-BRISTOL-MYERS SQUIBB COMPANY-BMS-2015-048759

PATIENT
  Sex: Female
  Weight: 71 kg

DRUGS (10)
  1. VIDEX [Suspect]
     Active Substance: DIDANOSINE
     Dosage: 250 MG, UNK
     Route: 048
     Dates: end: 2006
  2. TRUVADA [Suspect]
     Active Substance: EMTRICITABINE\TENOFOVIR DISOPROXIL FUMARATE
     Indication: HIV INFECTION
     Dosage: 1 TAB, QD
     Route: 065
     Dates: start: 20060909
  3. VIDEX [Suspect]
     Active Substance: DIDANOSINE
     Indication: HIV INFECTION
     Dosage: 400 MG, UNK
     Route: 048
     Dates: start: 2000, end: 2003
  4. SUSTIVA [Suspect]
     Active Substance: EFAVIRENZ
     Indication: HIV INFECTION
     Dosage: 3 TAB, QD
     Route: 065
     Dates: start: 200003, end: 200304
  5. INVIRASE [Suspect]
     Active Substance: SAQUINAVIR MESYLATE
     Indication: HIV INFECTION
     Dosage: 2 TAB, BID
     Route: 065
     Dates: start: 20071113
  6. KALETRA [Suspect]
     Active Substance: LOPINAVIR\RITONAVIR
     Indication: HIV INFECTION
     Dosage: 2 TAB, BID
     Route: 065
     Dates: start: 20061106, end: 20071113
  7. NORVIR [Suspect]
     Active Substance: RITONAVIR
     Indication: HIV INFECTION
     Dosage: 1 TAB, BID
     Route: 065
     Dates: start: 20071113
  8. SUSTIVA [Suspect]
     Active Substance: EFAVIRENZ
     Dosage: 600 MG, UNK
     Route: 065
     Dates: start: 200304, end: 200611
  9. ZERIT [Suspect]
     Active Substance: STAVUDINE
     Indication: HIV INFECTION
     Dosage: 40 MG, BID
     Route: 048
     Dates: start: 2000, end: 2003
  10. VIREAD [Suspect]
     Active Substance: TENOFOVIR DISOPROXIL FUMARATE
     Indication: HIV INFECTION
     Dosage: 1 TAB, QD
     Route: 065
     Dates: start: 200306

REACTIONS (1)
  - Hepatic cirrhosis [Recovered/Resolved with Sequelae]
